FAERS Safety Report 20765751 (Version 3)
Quarter: 2022Q3

REPORT INFORMATION
  Report Type: Spontaneous
  Country: US (occurrence: US)
  Receive Date: 20220428
  Receipt Date: 20220704
  Transmission Date: 20221027
  Serious: No
  Sender: FDA-Public Use
  Company Number: US-BRISTOL-MYERS SQUIBB COMPANY-2022-027290

PATIENT
  Age: 71 Year
  Sex: Female
  Weight: 81.65 kg

DRUGS (2)
  1. POMALYST [Suspect]
     Active Substance: POMALIDOMIDE
     Indication: Plasma cell myeloma
     Dosage: 4 MG DAILY 21 DAYS.
     Route: 048
     Dates: start: 202203
  2. POMALYST [Suspect]
     Active Substance: POMALIDOMIDE
     Dosage: 3 WEEK 1 WEEK OFF
     Route: 048
     Dates: start: 20220501

REACTIONS (5)
  - White blood cell count decreased [Recovering/Resolving]
  - Fatigue [Unknown]
  - Constipation [Unknown]
  - Rash [Unknown]
  - Diarrhoea [Unknown]

NARRATIVE: CASE EVENT DATE: 20220301
